FAERS Safety Report 9812632 (Version 2)
Quarter: 2014Q1

REPORT INFORMATION
  Report Type: Spontaneous
  Country: US (occurrence: US)
  Receive Date: 20140113
  Receipt Date: 20140220
  Transmission Date: 20141002
  Serious: No
  Sender: FDA-Public Use
  Company Number: US-009507513-1401USA002926

PATIENT
  Sex: Female
  Weight: 112.2 kg

DRUGS (8)
  1. VICTRELIS [Suspect]
     Indication: CHRONIC HEPATITIS C
     Dosage: 4 DF, TID
     Route: 065
     Dates: start: 20130823
  2. PEGASYS [Suspect]
     Indication: CHRONIC HEPATITIS C
     Dosage: PROCLICK, 180 MICROGRAM, QW
     Route: 058
     Dates: start: 20130823
  3. RIBASPHERE [Suspect]
     Indication: CHRONIC HEPATITIS C
     Dosage: 1200 MG PER DAY IN DIVIDED DOSES
     Route: 048
     Dates: start: 20130823
  4. SEROQUEL [Concomitant]
     Dosage: UNK
  5. ZOLOFT [Concomitant]
     Dosage: UNK
  6. ADVAIR [Concomitant]
  7. PROAIR (ALBUTEROL SULFATE) [Concomitant]
  8. AMBIEN [Concomitant]

REACTIONS (9)
  - Abdominal tenderness [Unknown]
  - Thirst [Unknown]
  - Gastroenteritis viral [Unknown]
  - Malaise [Unknown]
  - Influenza [Unknown]
  - Weight decreased [Unknown]
  - Musculoskeletal chest pain [Unknown]
  - Pruritus generalised [Unknown]
  - Diarrhoea [Unknown]
